FAERS Safety Report 4342728-8 (Version None)
Quarter: 2004Q2

REPORT INFORMATION
  Report Type: 
  Country: None (occurrence: None)
  Receive Date: 20040416
  Receipt Date: 20040407
  Transmission Date: 20050107
  Serious: Yes (Hospitalization, Disabling)
  Sender: FDA-Public Use
  Company Number: 2004-03-0505

PATIENT
  Age: 48 Year
  Sex: Male
  Weight: 64 kg

DRUGS (6)
  1. REBETOL [Suspect]
     Indication: HEPATITIS C
     Dosage: 600 MG QD ORAL
     Route: 048
     Dates: start: 20031110, end: 20030306
  2. INTRON A [Suspect]
     Indication: HEPATITIS C
     Dosage: 6 MU QD-TIW INTRAMUSCULAR
     Route: 030
     Dates: start: 20031110, end: 20031210
  3. INTRON A [Suspect]
     Indication: HEPATITIS C
     Dosage: 6 MU QD-TIW INTRAMUSCULAR
     Route: 030
     Dates: start: 20031212, end: 20040306
  4. URSO [Concomitant]
  5. BIOFERMIN [Concomitant]
  6. ALBUMIN TANNATE [Concomitant]

REACTIONS (5)
  - APHASIA [None]
  - BLOOD PRESSURE INCREASED [None]
  - COMA [None]
  - POST PROCEDURAL HAEMORRHAGE [None]
  - PUTAMEN HAEMORRHAGE [None]
